FAERS Safety Report 16059027 (Version 4)
Quarter: 2019Q1

REPORT INFORMATION
  Report Type: Spontaneous
  Country: US (occurrence: US)
  Receive Date: 20190311
  Receipt Date: 20190326
  Transmission Date: 20190418
  Serious: No
  Sender: FDA-Public Use
  Company Number: US-PFIZER INC-2018437965

PATIENT
  Age: 85 Year
  Sex: Female
  Weight: 79 kg

DRUGS (4)
  1. LYRICA [Suspect]
     Active Substance: PREGABALIN
     Indication: FIBROMYALGIA
     Dosage: 150 MG, 2X/DAY
     Route: 048
     Dates: start: 20190213
  2. METHOCARBAMOL. [Concomitant]
     Active Substance: METHOCARBAMOL
     Indication: SEIZURE
     Dosage: 750 MG, DAILY[750MG TABLET TAKEN BY MOUTH DAILY]
     Route: 048
  3. LYRICA [Suspect]
     Active Substance: PREGABALIN
     Indication: LUMBAR RADICULOPATHY
     Dosage: 150 MG, 2X/DAY
     Route: 048
     Dates: end: 201811
  4. HYDROCODIN [Concomitant]
     Active Substance: DIHYDROCODEINE BITARTRATE
     Indication: PAIN
     Dosage: 7.25 MG, 4X/DAY [7.25MG TABLET TAKEN BY MOUTH 4 TIMES DAILY]
     Route: 048

REACTIONS (2)
  - Tremor [Unknown]
  - Intentional product misuse [Unknown]
